FAERS Safety Report 16971320 (Version 3)
Quarter: 2020Q1

REPORT INFORMATION
  Report Type: Spontaneous
  Country: US (occurrence: US)
  Receive Date: 20191029
  Receipt Date: 20200205
  Transmission Date: 20200409
  Serious: Yes (Other)
  Sender: FDA-Public Use
  Company Number: US-PFIZER INC-2019466123

PATIENT
  Age: 24 Year
  Sex: Female
  Weight: 54.43 kg

DRUGS (2)
  1. REVATIO [Suspect]
     Active Substance: SILDENAFIL CITRATE
     Indication: BLOOD PRESSURE ABNORMAL
     Dosage: 2 TABLETS, DAILY (40 MG, DAILY)
  2. REVATIO [Suspect]
     Active Substance: SILDENAFIL CITRATE
     Indication: CARDIAC DISORDER
     Dosage: 20 MG, 2X/DAY
     Dates: start: 201906

REACTIONS (7)
  - Off label use [Unknown]
  - Gastrointestinal haemorrhage [Unknown]
  - Product dose omission [Unknown]
  - Product use issue [Unknown]
  - Hypertension [Unknown]
  - Transposition of the great vessels [Unknown]
  - Seizure [Unknown]

NARRATIVE: CASE EVENT DATE: 2019
